FAERS Safety Report 9636079 (Version 1)
Quarter: 2013Q4

REPORT INFORMATION
  Report Type: Spontaneous
  Country: US (occurrence: US)
  Receive Date: 20131021
  Receipt Date: 20131021
  Transmission Date: 20140711
  Serious: Yes (Other)
  Sender: FDA-Public Use
  Company Number: US-AMGEN-USASP2013073417

PATIENT
  Age: 30 Year
  Sex: Female

DRUGS (5)
  1. ENBREL [Suspect]
     Indication: PRODUCT USED FOR UNKNOWN INDICATION
     Dosage: 50 MG, QWK
     Route: 058
  2. METHOTREXATE [Concomitant]
     Dosage: 2.5 MG, UNK
  3. HYDROCODONE W/APAP                 /00607101/ [Concomitant]
     Dosage: 5-500 MG
  4. ZYRTEC-D [Concomitant]
     Dosage: UNK
  5. CONGEST [Concomitant]
     Dosage: UNK

REACTIONS (1)
  - Nephrolithiasis [Unknown]
